FAERS Safety Report 6503125-X (Version None)
Quarter: 2009Q4

REPORT INFORMATION
  Report Type: 
  Country: None (occurrence: None)
  Receive Date: 20091201
  Receipt Date: 20090623
  Transmission Date: 20100525
  Serious: Yes (Life-Threatening, Hospitalization)
  Sender: FDA-Public Use
  Company Number: 2009-199354-NL

PATIENT
  Age: 26 Year
  Sex: Female
  Weight: 107.5 kg

DRUGS (2)
  1. NUVARING [Suspect]
     Indication: CONTRACEPTION
     Dates: start: 20090301
  2. MULTI-VITAMINS [Concomitant]

REACTIONS (2)
  - MUSCLE SPASMS [None]
  - PULMONARY EMBOLISM [None]
